FAERS Safety Report 6403685-3 (Version None)
Quarter: 2009Q4

REPORT INFORMATION
  Report Type: 
  Country: None (occurrence: None)
  Receive Date: 20091016
  Receipt Date: 20091013
  Transmission Date: 20100525
  Serious: Yes (Death)
  Sender: FDA-Public Use
  Company Number: JP-JNJFOC-20091004747

PATIENT
  Sex: Female
  Weight: 44 kg

DRUGS (7)
  1. DUROTEP MT [Suspect]
     Route: 062
     Dates: start: 20090601
  2. DUROTEP MT [Suspect]
     Route: 062
     Dates: start: 20090601
  3. DUROTEP MT [Suspect]
     Route: 062
     Dates: start: 20090601
  4. DUROTEP MT [Suspect]
     Route: 062
     Dates: start: 20090601
  5. DUROTEP MT [Suspect]
     Indication: CANCER PAIN
     Route: 062
     Dates: start: 20090601
  6. LOXONIN [Suspect]
     Indication: ANALGESIC THERAPY
     Route: 048
     Dates: end: 20090907
  7. OXYCONTIN [Concomitant]
     Indication: CANCER PAIN
     Route: 048

REACTIONS (2)
  - CERVIX CARCINOMA [None]
  - PLATELET COUNT DECREASED [None]
